FAERS Safety Report 13210033 (Version 2)
Quarter: 2017Q1

REPORT INFORMATION
  Report Type: Spontaneous
  Country: PT (occurrence: PT)
  Receive Date: 20170210
  Receipt Date: 20170217
  Transmission Date: 20170428
  Serious: Yes (Death, Other)
  Sender: FDA-Public Use
  Company Number: PT-JNJFOC-20170207700

PATIENT

DRUGS (1)
  1. IBRUTINIB [Suspect]
     Active Substance: IBRUTINIB
     Indication: CHRONIC LYMPHOCYTIC LEUKAEMIA
     Route: 048

REACTIONS (12)
  - Febrile neutropenia [Unknown]
  - Toxicity to various agents [Unknown]
  - Infection [Unknown]
  - Death [Fatal]
  - Drug interaction [Unknown]
  - Neutropenia [Unknown]
  - Gastrointestinal toxicity [Unknown]
  - Hypertension [Unknown]
  - Haemorrhage [Unknown]
  - Arthralgia [Unknown]
  - Thrombocytopenia [Unknown]
  - Disease progression [Unknown]
